FAERS Safety Report 6418696-1 (Version None)
Quarter: 2009Q4

REPORT INFORMATION
  Report Type: 
  Country: None (occurrence: None)
  Receive Date: 20091026
  Receipt Date: 20091013
  Transmission Date: 20100525
  Serious: Yes (Life-Threatening, Hospitalization, Other)
  Sender: FDA-Public Use
  Company Number: ADR38952009

PATIENT
  Age: 66 Year
  Sex: Female

DRUGS (5)
  1. SIMVASTATIN [Suspect]
     Indication: HYPERCHOLESTEROLAEMIA
     Dosage: 10 MG, ORAL
     Route: 048
     Dates: start: 19981206, end: 20080207
  2. LEVOTHYROXINE SODIUM [Concomitant]
  3. PRIMIDONE [Concomitant]
  4. RAMIPRIL [Concomitant]
  5. TOPIRAMATE [Concomitant]

REACTIONS (4)
  - MUSCULAR WEAKNESS [None]
  - PNEUMONITIS [None]
  - RASH GENERALISED [None]
  - SYSTEMIC LUPUS ERYTHEMATOSUS [None]
